FAERS Safety Report 6080883-2 (Version None)
Quarter: 2009Q1

REPORT INFORMATION
  Report Type: 
  Country: None (occurrence: None)
  Receive Date: 20090217
  Receipt Date: 20090116
  Transmission Date: 20090719
  Serious: No
  Sender: FDA-Public Use
  Company Number: US-B.I. PHARMACEUTICALS,INC./RIDGEFIELD-2009-BP-01844BP

PATIENT

DRUGS (2)
  1. VIRAMUNE [Suspect]
     Indication: EXPOSURE TO COMMUNICABLE DISEASE
  2. COMBIVIR [Concomitant]

REACTIONS (3)
  - ABDOMINAL DISCOMFORT [None]
  - FATIGUE [None]
  - LYMPHADENOPATHY [None]
